FAERS Safety Report 22001581 (Version 3)
Quarter: 2023Q2

REPORT INFORMATION
  Report Type: Spontaneous
  Country: US (occurrence: US)
  Receive Date: 20230216
  Receipt Date: 20230426
  Transmission Date: 20230721
  Serious: Yes (Other)
  Sender: FDA-Public Use
  Company Number: US-KARYOPHARM-2022KPT001656

PATIENT

DRUGS (12)
  1. XPOVIO [Suspect]
     Active Substance: SELINEXOR
     Indication: Brain neoplasm malignant
     Dosage: 80 MG, WEEKLY
     Route: 048
     Dates: start: 202212, end: 202303
  2. AMANTADINE [Concomitant]
     Active Substance: AMANTADINE
  3. AVASTIN [Concomitant]
     Active Substance: BEVACIZUMAB
  4. AZELAIC ACID [Concomitant]
     Active Substance: AZELAIC ACID
  5. CLINDAMYCIN;TRETINOIN [Concomitant]
  6. DESONIDE [Concomitant]
     Active Substance: DESONIDE
  7. DONEPEZIL [Concomitant]
     Active Substance: DONEPEZIL
  8. LEVETIRACETAM [Concomitant]
     Active Substance: LEVETIRACETAM
  9. LEVOTHYROXINE [Concomitant]
     Active Substance: LEVOTHYROXINE
  10. ONDANSETRON [Concomitant]
     Active Substance: ONDANSETRON
  11. SULFACETAMIDE [Concomitant]
     Active Substance: SULFACETAMIDE
  12. ZONISAMIDE [Concomitant]
     Active Substance: ZONISAMIDE

REACTIONS (7)
  - Seizure [Unknown]
  - COVID-19 [Recovering/Resolving]
  - Gastrointestinal infection [Unknown]
  - Vomiting [Unknown]
  - Nausea [Unknown]
  - Off label use [Unknown]
  - Product dose omission issue [Unknown]

NARRATIVE: CASE EVENT DATE: 20221201
